FAERS Safety Report 11258168 (Version 1)
Quarter: 2015Q3

REPORT INFORMATION
  Report Type: Spontaneous
  Country: US (occurrence: US)
  Receive Date: 20150710
  Receipt Date: 20150710
  Transmission Date: 20151125
  Serious: Yes (Other)
  Sender: FDA-Public Use
  Company Number: US-CIPLA LTD.-2015US05517

PATIENT

DRUGS (5)
  1. PACLITAXEL. [Suspect]
     Active Substance: PACLITAXEL
     Indication: MALIGNANT MELANOMA
     Route: 065
  2. CARBOPLATIN. [Suspect]
     Active Substance: CARBOPLATIN
     Indication: MALIGNANT MELANOMA
     Route: 065
  3. TEMOZOLOMIDE. [Suspect]
     Active Substance: TEMOZOLOMIDE
     Indication: MALIGNANT MELANOMA
     Route: 065
  4. IPILIMUMAB [Suspect]
     Active Substance: IPILIMUMAB
     Indication: MALIGNANT MELANOMA
     Dosage: MINIMUM TWO DOSES, 3 MG/KG ONCE EVERY 3 WEEKS
     Route: 065
  5. DACARBAZINE. [Suspect]
     Active Substance: DACARBAZINE
     Indication: MALIGNANT MELANOMA
     Route: 065

REACTIONS (1)
  - Myalgia [Unknown]
